FAERS Safety Report 10192872 (Version 2)
Quarter: 2014Q2

REPORT INFORMATION
  Report Type: Report from Study
  Country: CO (occurrence: CO)
  Receive Date: 20140523
  Receipt Date: 20140605
  Transmission Date: 20141212
  Serious: No
  Sender: FDA-Public Use
  Company Number: CO-ASTRAZENECA-2014SE34656

PATIENT
  Age: 661 Month
  Sex: Female

DRUGS (7)
  1. BRILINTA [Suspect]
     Indication: INFARCTION
     Route: 048
     Dates: start: 20130715, end: 20140430
  2. ASA [Concomitant]
  3. VASTAREL [Concomitant]
  4. OMEPRAZOLE [Concomitant]
  5. LOVASTATIN [Concomitant]
  6. ENALAPRIL [Concomitant]
  7. AMLODIPINE [Concomitant]

REACTIONS (1)
  - Tachycardia [Recovered/Resolved]
